FAERS Safety Report 6413045-7 (Version None)
Quarter: 2009Q4

REPORT INFORMATION
  Report Type: 
  Country: None (occurrence: None)
  Receive Date: 20091023
  Receipt Date: 20091023
  Transmission Date: 20100525
  Serious: Yes (Hospitalization)
  Sender: FDA-Public Use
  Company Number: None

PATIENT
  Sex: Female
  Weight: 81.1939 kg

DRUGS (1)
  1. CLINDAMYCIN [Suspect]
     Indication: TOOTH DISORDER
     Dosage: 300 MG EVERY 6 HRS
     Dates: start: 20090401, end: 20091015

REACTIONS (2)
  - ASTHENIA [None]
  - CLOSTRIDIUM DIFFICILE COLITIS [None]
